FAERS Safety Report 7854469-0 (Version None)
Quarter: 2011Q4

REPORT INFORMATION
  Report Type: 
  Country: None (occurrence: None)
  Receive Date: 20111026
  Receipt Date: 20111020
  Transmission Date: 20120403
  Serious: Yes (Death, Other)
  Sender: FDA-Public Use
  Company Number: PL-PFIZER INC-2011254679

PATIENT
  Age: 68 Year
  Sex: Male

DRUGS (6)
  1. COLCHICINE [Suspect]
     Dosage: 1 MG/DAY
  2. COLCHICINE [Suspect]
     Dosage: 0.5 MG/DAY
  3. PREDNISONE [Suspect]
     Dosage: 60 MG/DAY
  4. PREDNISONE [Suspect]
     Dosage: 45 MG/DAY
  5. METHOTREXATE [Suspect]
     Dosage: 20 MG, WEEKLY
  6. METHYLPREDNISOLONE [Suspect]
     Dosage: 500 MG, ^3 PULSES^
     Route: 042

REACTIONS (4)
  - SEPSIS [None]
  - INFLAMMATION [None]
  - IMMUNOSUPPRESSION [None]
  - DRUG INEFFECTIVE [None]
